FAERS Safety Report 5614492-3 (Version None)
Quarter: 2008Q1

REPORT INFORMATION
  Report Type: 
  Country: None (occurrence: None)
  Receive Date: 20080130
  Receipt Date: 20080118
  Transmission Date: 20080703
  Serious: Yes (Other)
  Sender: FDA-Public Use
  Company Number: 230712J08USA

PATIENT
  Age: 30 Year
  Sex: Female

DRUGS (1)
  1. REBIF [Suspect]
     Indication: MULTIPLE SCLEROSIS
     Dosage: 44 MCG, 3 IN 1 WEEKS, SUBCUTANEOUS
     Route: 058
     Dates: start: 20070520

REACTIONS (7)
  - BURNS SECOND DEGREE [None]
  - BURNS THIRD DEGREE [None]
  - CONDITION AGGRAVATED [None]
  - FATIGUE [None]
  - IMPAIRED HEALING [None]
  - MULTIPLE SCLEROSIS [None]
  - NECROSIS [None]
